FAERS Safety Report 7426786-X (Version None)
Quarter: 2011Q2

REPORT INFORMATION
  Report Type: 
  Country: None (occurrence: None)
  Receive Date: 20110420
  Receipt Date: 20110412
  Transmission Date: 20111010
  Serious: Yes (Hospitalization)
  Sender: FDA-Public Use
  Company Number: US-MERCK-1104USA01784

PATIENT
  Age: 62 Year
  Sex: Female

DRUGS (2)
  1. COZAAR [Concomitant]
     Route: 048
  2. COZAAR [Suspect]
     Indication: HYPERTENSION
     Route: 048

REACTIONS (2)
  - DRUG INEFFECTIVE [None]
  - BLOOD PRESSURE DECREASED [None]
